FAERS Safety Report 14744633 (Version 1)
Quarter: 2018Q2

REPORT INFORMATION
  Report Type: Spontaneous
  Country: US (occurrence: US)
  Receive Date: 20180405
  Receipt Date: 20180405
  Transmission Date: 20180711
  Serious: Yes (Death, Hospitalization)
  Sender: FDA-Public Use
  Company Number: None

PATIENT
  Age: 62 Year
  Sex: Male
  Weight: 112.04 kg

DRUGS (2)
  1. VITAMIN D3 [Suspect]
     Active Substance: CHOLECALCIFEROL
     Route: 048
     Dates: start: 20171027
  2. VITAMIN D3 [Suspect]
     Active Substance: CHOLECALCIFEROL
     Indication: VITAMIN D DEFICIENCY
     Route: 048
     Dates: start: 20170719, end: 20171004

REACTIONS (6)
  - Dyspnoea [None]
  - Decreased appetite [None]
  - Nausea [None]
  - Confusional state [None]
  - Blood sodium abnormal [None]
  - Asthenia [None]

NARRATIVE: CASE EVENT DATE: 20180316
